FAERS Safety Report 26058170 (Version 1)
Quarter: 2025Q4

REPORT INFORMATION
  Report Type: Report from Study
  Country: US (occurrence: US)
  Receive Date: 20251118
  Receipt Date: 20251118
  Transmission Date: 20260117
  Serious: Yes (Other)
  Sender: ABBVIE
  Company Number: US-ABBVIE-6552566

PATIENT
  Sex: Male

DRUGS (1)
  1. VENCLEXTA [Suspect]
     Active Substance: VENETOCLAX
     Indication: Mantle cell lymphoma
     Dosage: FORM STRENGTH 100 MG TAKE 4 TABLETS BY MOUTH DAILY WITH A MEAL AND A GLASS OF WATER
     Route: 048

REACTIONS (2)
  - Pleural effusion [Unknown]
  - Chest pain [Not Recovered/Not Resolved]
